FAERS Safety Report 7993407-7 (Version None)
Quarter: 2011Q4

REPORT INFORMATION
  Report Type: 
  Country: None (occurrence: None)
  Receive Date: 20111219
  Receipt Date: 20110414
  Transmission Date: 20120403
  Serious: No
  Sender: FDA-Public Use
  Company Number: US-ASTRAZENECA-2011SE21485

PATIENT
  Sex: Female

DRUGS (3)
  1. NIASPAN [Concomitant]
  2. ZETIA [Suspect]
     Route: 065
  3. CRESTOR [Suspect]
     Indication: HYPERCHOLESTEROLAEMIA
     Route: 048
     Dates: start: 20030101, end: 20110401

REACTIONS (3)
  - MUSCULOSKELETAL PAIN [None]
  - URINE OUTPUT DECREASED [None]
  - ARTHRALGIA [None]
